FAERS Safety Report 20251131 (Version 1)
Quarter: 2021Q4

REPORT INFORMATION
  Report Type: Spontaneous
  Country: US (occurrence: US)
  Receive Date: 20211229
  Receipt Date: 20211229
  Transmission Date: 20220303
  Serious: No
  Sender: FDA-Public Use
  Company Number: US-CLOVIS ONCOLOGY-CLO-2021-000409

PATIENT

DRUGS (1)
  1. RUBRACA [Suspect]
     Active Substance: RUCAPARIB CAMSYLATE
     Indication: Product used for unknown indication
     Dosage: 1200 MILLIGRAM, QD
     Route: 048
     Dates: start: 2021, end: 2021

REACTIONS (1)
  - Adverse event [Unknown]

NARRATIVE: CASE EVENT DATE: 20210101
